FAERS Safety Report 9781779 (Version 1)
Quarter: 2013Q4

REPORT INFORMATION
  Report Type: Spontaneous
  Country: FR (occurrence: FR)
  Receive Date: 20131225
  Receipt Date: 20131225
  Transmission Date: 20140711
  Serious: Yes (Other)
  Sender: FDA-Public Use
  Company Number: FR-ROCHE-1322878

PATIENT
  Age: 29 Year
  Sex: Female

DRUGS (1)
  1. AVASTIN [Suspect]
     Indication: NEOPLASM MALIGNANT
     Route: 041
     Dates: start: 201305

REACTIONS (1)
  - Haemangioma of liver [Not Recovered/Not Resolved]
